FAERS Safety Report 14944829 (Version 1)
Quarter: 2018Q2

REPORT INFORMATION
  Report Type: Spontaneous
  Country: FR (occurrence: FR)
  Receive Date: 20180529
  Receipt Date: 20180529
  Transmission Date: 20180711
  Serious: Yes (Hospitalization)
  Sender: FDA-Public Use
  Company Number: FR-TEVA-2018-FR-898898

PATIENT
  Age: 30 Year
  Sex: Female
  Weight: 65 kg

DRUGS (4)
  1. EFFEXOR [Suspect]
     Active Substance: VENLAFAXINE HYDROCHLORIDE
     Indication: SUICIDE ATTEMPT
     Route: 048
     Dates: start: 20171228, end: 20171228
  2. THERALENE 5 MG, COMPRIM? PELLICUL? S?CABLE [Suspect]
     Active Substance: TRIMEPRAZINE TARTRATE
     Indication: SUICIDE ATTEMPT
     Route: 048
     Dates: start: 20171228, end: 20171228
  3. ALPRAZOLAM. [Suspect]
     Active Substance: ALPRAZOLAM
     Indication: SUICIDE ATTEMPT
     Route: 048
     Dates: start: 20171228, end: 20171228
  4. TETRAHYDROCANNABINOLS [Suspect]
     Active Substance: DRONABINOL
     Route: 065

REACTIONS (5)
  - Suicide attempt [None]
  - Vomiting [Recovered/Resolved]
  - Somnolence [Recovered/Resolved]
  - Bradycardia [Recovered/Resolved]
  - Agitation [Recovered/Resolved]

NARRATIVE: CASE EVENT DATE: 20171228
